FAERS Safety Report 10078749 (Version 3)
Quarter: 2014Q2

REPORT INFORMATION
  Report Type: Spontaneous
  Country: FR (occurrence: FR)
  Receive Date: 20140415
  Receipt Date: 20140508
  Transmission Date: 20141212
  Serious: Yes (Death, Hospitalization)
  Sender: FDA-Public Use
  Company Number: FR-PFIZER INC-2014100245

PATIENT
  Age: 68 Year
  Sex: Female

DRUGS (10)
  1. DOXORUBICIN HCL [Suspect]
     Dosage: UNK
     Route: 042
     Dates: start: 20130923, end: 20130926
  2. VINCRISTINE SULFATE [Suspect]
     Dosage: UNK
     Route: 042
     Dates: start: 20130923, end: 20130926
  3. DECTANCYL [Concomitant]
     Dosage: 40 MG, WEEKLY
     Route: 048
     Dates: start: 201307
  4. EPREX [Concomitant]
     Dosage: 1 DF, WEEKLY
     Route: 058
     Dates: start: 20130918
  5. INEXIUM /01479302/ [Concomitant]
     Dosage: 20 MG, 1X/DAY
     Route: 048
  6. SKENAN [Concomitant]
     Dosage: 10 MG, 2X/DAY
     Route: 048
  7. DAFALGAN [Concomitant]
     Dosage: 500 MG, 2 DF 3 TIMES DAILY
     Route: 048
  8. TAREG [Concomitant]
     Dosage: UNK
     Route: 048
     Dates: end: 20130928
  9. LIPANTHYL [Concomitant]
     Dosage: 160 MG, 1X/DAY
     Route: 048
     Dates: end: 20130928
  10. CLAMOXYL [Concomitant]
     Dosage: 1 G, 2X/DAY
     Route: 048
     Dates: start: 201309

REACTIONS (2)
  - General physical health deterioration [Fatal]
  - Myocardial infarction [Recovered/Resolved with Sequelae]
